FAERS Safety Report 9036306 (Version 1)
Quarter: 2013Q1

REPORT INFORMATION
  Report Type: Spontaneous
  Country: US (occurrence: None)
  Receive Date: 20130117
  Receipt Date: 20130117
  Transmission Date: 20140127
  Serious: Yes (Other)
  Sender: FDA-Public Use
  Company Number: None

PATIENT
  Sex: Female

DRUGS (2)
  1. LAMICTAL XR 200MG [Suspect]
     Dosage: 2 DOSES OF 200 MG, QD, PO
     Route: 048
     Dates: start: 201008
  2. LAMICTAL XR [Suspect]
     Dosage: 1 DOSE OF 50 MG, PO, QD
     Route: 048

REACTIONS (1)
  - Ill-defined disorder [None]
